FAERS Safety Report 8186822-2 (Version None)
Quarter: 2012Q1

REPORT INFORMATION
  Report Type: 
  Country: None (occurrence: None)
  Receive Date: 20120306
  Receipt Date: 20120227
  Transmission Date: 20120608
  Serious: Yes (Hospitalization)
  Sender: FDA-Public Use
  Company Number: NZ-B.I. PHARMACEUTICALS,INC./RIDGEFIELD-2011-AU-02310AU

PATIENT
  Age: 77 Year
  Sex: Female
  Weight: 67 kg

DRUGS (9)
  1. PRADAXA [Suspect]
     Indication: ATRIAL FIBRILLATION
     Dosage: 220 MG
     Dates: start: 20110725, end: 20110909
  2. DOXEPIN HCL [Concomitant]
     Dosage: 10 MG
  3. ACCUPRIL [Concomitant]
     Dosage: 5 MG
  4. OVESTIN [Concomitant]
     Dosage: 1 MG
  5. PRILOSEC [Concomitant]
     Indication: GASTROOESOPHAGEAL REFLUX DISEASE
     Dosage: 80 MG
  6. CHOLECALCIFEROL [Concomitant]
     Dosage: 0.0417 MG
  7. METOPROLOL TARTRATE [Concomitant]
     Dosage: 142.5 MG
  8. SIMVASTATIN [Concomitant]
     Dosage: 20 MG
  9. DIGOXIN [Concomitant]
     Dosage: 250 MCG

REACTIONS (4)
  - GASTRIC MUCOSAL LESION [None]
  - HIATUS HERNIA [None]
  - EROSIVE OESOPHAGITIS [None]
  - HAEMATEMESIS [None]
